FAERS Safety Report 7163748-4 (Version None)
Quarter: 2010Q4

REPORT INFORMATION
  Report Type: 
  Country: None (occurrence: None)
  Receive Date: 20101201
  Receipt Date: 20101115
  Transmission Date: 20110411
  Serious: Yes (Death)
  Sender: FDA-Public Use
  Company Number: 2010005081

PATIENT

DRUGS (1)
  1. ERLOTINIB HYDROCHLORIDE [Suspect]
     Indication: HEAD AND NECK CANCER
     Dosage: (150 MG, DAILY), ORAL
     Route: 048

REACTIONS (19)
  - ARTERIAL HAEMORRHAGE [None]
  - ARTERIAL RUPTURE [None]
  - DEHYDRATION [None]
  - DERMATITIS [None]
  - DIARRHOEA [None]
  - DRUG ERUPTION [None]
  - DRUG TOXICITY [None]
  - DYSPHAGIA [None]
  - FATIGUE [None]
  - HEAD AND NECK CANCER [None]
  - MYOCARDIAL INFARCTION [None]
  - OSTEONECROSIS OF JAW [None]
  - OSTEORADIONECROSIS [None]
  - PNEUMONIA ASPIRATION [None]
  - RADIATION SICKNESS SYNDROME [None]
  - RADIATION SKIN INJURY [None]
  - RECURRENT CANCER [None]
  - STOMATITIS [None]
  - TONGUE NEOPLASM MALIGNANT STAGE UNSPECIFIED [None]
